FAERS Safety Report 4276145-6 (Version None)
Quarter: 2004Q1

REPORT INFORMATION
  Report Type: 
  Country: None (occurrence: None)
  Receive Date: 20040121
  Receipt Date: 20031110
  Transmission Date: 20041129
  Serious: No
  Sender: FDA-Public Use
  Company Number: US-GLAXOSMITHKLINE-A0439061A

PATIENT
  Age: 48 Year
  Sex: Male

DRUGS (4)
  1. VALTREX [Suspect]
     Dosage: 500MG PER DAY
     Route: 048
     Dates: start: 19951101, end: 20031109
  2. ACIPHEX [Concomitant]
  3. PRILOSEC [Concomitant]
  4. PREVACID [Concomitant]

REACTIONS (1)
  - OESOPHAGITIS [None]
